FAERS Safety Report 11321498 (Version 1)
Quarter: 2015Q3

REPORT INFORMATION
  Report Type: Spontaneous
  Country: US (occurrence: US)
  Receive Date: 20150729
  Receipt Date: 20150729
  Transmission Date: 20151125
  Serious: No
  Sender: FDA-Public Use
  Company Number: US-ENDO PHARMACEUTICALS INC.-201503043

PATIENT
  Age: 47 Year
  Sex: Female
  Weight: 63.11 kg

DRUGS (9)
  1. ANESTHETICS, LOCAL [Suspect]
     Active Substance: UNSPECIFIED INGREDIENT
     Dates: start: 20150202
  2. IBUPROFEN. [Concomitant]
     Active Substance: IBUPROFEN
     Indication: PAIN
  3. HYDROCODONE [Concomitant]
     Active Substance: HYDROCODONE
     Indication: PAIN
  4. TESTOPEL [Suspect]
     Active Substance: TESTOSTERONE
     Indication: BLOOD TESTOSTERONE DECREASED
     Route: 058
     Dates: start: 20150202
  5. MULTIVITAMINS [Concomitant]
     Active Substance: VITAMINS
  6. ALEVE [Concomitant]
     Active Substance: NAPROXEN SODIUM
     Indication: PAIN
  7. TESTOPEL [Suspect]
     Active Substance: TESTOSTERONE
     Indication: ASTHENIA
  8. WELLBUTRIN [Concomitant]
     Active Substance: BUPROPION HYDROCHLORIDE
  9. TESTOPEL [Suspect]
     Active Substance: TESTOSTERONE
     Indication: DISTURBANCE IN SEXUAL AROUSAL

REACTIONS (4)
  - Implant site induration [Not Recovered/Not Resolved]
  - Musculoskeletal pain [Not Recovered/Not Resolved]
  - Drug ineffective for unapproved indication [Not Recovered/Not Resolved]
  - Off label use [Not Recovered/Not Resolved]

NARRATIVE: CASE EVENT DATE: 20150202
